FAERS Safety Report 23987701 (Version 4)
Quarter: 2024Q3

REPORT INFORMATION
  Report Type: Spontaneous
  Country: US (occurrence: US)
  Receive Date: 20240619
  Receipt Date: 20240724
  Transmission Date: 20241017
  Serious: No
  Sender: EMCURE
  Company Number: US-AVET LIFESCIENCES LTD-2024-AVET-000214

PATIENT

DRUGS (2)
  1. HYDRALAZINE HYDROCHLORIDE [Suspect]
     Active Substance: HYDRALAZINE HYDROCHLORIDE
     Indication: Hypertension
     Dosage: TABLETS 100MG (ORANGE VERSION)
     Route: 048
     Dates: end: 20240614
  2. HYDRALAZINE HYDROCHLORIDE [Suspect]
     Active Substance: HYDRALAZINE HYDROCHLORIDE
     Dosage: UNK, 50 MILLIGRAM VERSION OF THE MEDICATION
     Route: 048

REACTIONS (3)
  - Burning sensation [Unknown]
  - Dysphagia [Recovering/Resolving]
  - Throat irritation [Unknown]
